FAERS Safety Report 6118509-1 (Version None)
Quarter: 2009Q1

REPORT INFORMATION
  Report Type: 
  Country: None (occurrence: None)
  Receive Date: 20090314
  Receipt Date: 20090220
  Transmission Date: 20090719
  Serious: No
  Sender: FDA-Public Use
  Company Number: US-ABBOTT-09P-163-0558699-00

PATIENT
  Sex: Female
  Weight: 72.64 kg

DRUGS (12)
  1. HUMIRA [Suspect]
     Indication: RHEUMATOID ARTHRITIS
     Dates: start: 20081202
  2. ATENOLOL [Concomitant]
     Indication: DRUG USE FOR UNKNOWN INDICATION
  3. LISINOPRIL [Concomitant]
     Indication: DRUG USE FOR UNKNOWN INDICATION
  4. SYNOVASTATIN [Concomitant]
     Indication: DRUG USE FOR UNKNOWN INDICATION
  5. PLAVIX [Concomitant]
     Indication: DRUG USE FOR UNKNOWN INDICATION
  6. SYNTHROID [Concomitant]
     Indication: DRUG USE FOR UNKNOWN INDICATION
  7. PREDNISONE [Concomitant]
     Indication: DRUG USE FOR UNKNOWN INDICATION
  8. METHOTREXATE [Concomitant]
     Indication: DRUG USE FOR UNKNOWN INDICATION
     Dosage: 6 PILLS EVERY TUESDAY
     Route: 048
  9. RANITIDINE [Concomitant]
     Indication: DRUG USE FOR UNKNOWN INDICATION
  10. FOLIC ACID [Concomitant]
     Indication: DRUG USE FOR UNKNOWN INDICATION
  11. VITAMIN B COMPLEX CAP [Concomitant]
     Indication: DRUG USE FOR UNKNOWN INDICATION
  12. CALCIUM [Concomitant]
     Indication: DRUG USE FOR UNKNOWN INDICATION

REACTIONS (4)
  - ARTHRALGIA [None]
  - GAIT DISTURBANCE [None]
  - JOINT SWELLING [None]
  - OEDEMA PERIPHERAL [None]
